FAERS Safety Report 11880041 (Version 1)
Quarter: 2015Q4

REPORT INFORMATION
  Report Type: Spontaneous
  Country: IN (occurrence: IN)
  Receive Date: 20151230
  Receipt Date: 20151230
  Transmission Date: 20160305
  Serious: Yes (Death)
  Sender: FDA-Public Use
  Company Number: IN-CELGENE-IND-2015123772

PATIENT
  Age: 36 Year
  Sex: Male

DRUGS (3)
  1. THALIDOMIDE [Suspect]
     Active Substance: THALIDOMIDE
     Indication: LEPROMATOUS LEPROSY
     Route: 048
  2. DEXAMETHASONE. [Concomitant]
     Active Substance: DEXAMETHASONE
     Indication: LEPROMATOUS LEPROSY
     Route: 065
  3. MELPHALAN [Concomitant]
     Active Substance: MELPHALAN
     Indication: LEPROMATOUS LEPROSY
     Route: 065

REACTIONS (4)
  - Multi-organ failure [Fatal]
  - Inappropriate antidiuretic hormone secretion [Fatal]
  - Adrenal haemorrhage [Fatal]
  - Strongyloidiasis [Fatal]
